FAERS Safety Report 7590965-1 (Version None)
Quarter: 2011Q3

REPORT INFORMATION
  Report Type: 
  Country: None (occurrence: None)
  Receive Date: 20110705
  Receipt Date: 20110627
  Transmission Date: 20111222
  Serious: Yes (Hospitalization)
  Sender: FDA-Public Use
  Company Number: PHHO2010BE11482

PATIENT
  Sex: Female
  Weight: 67 kg

DRUGS (13)
  1. NEORAL [Suspect]
     Dosage: 200 MG, QD
     Dates: start: 20090805, end: 20090809
  2. SIMULECT [Suspect]
     Indication: RENAL TRANSPLANT
     Dosage: 20 MG, ONCE/SINGLE
     Route: 042
     Dates: start: 20090630, end: 20090630
  3. MYFORTIC [Suspect]
     Dosage: UNK
  4. MEDROL [Suspect]
     Indication: RENAL TRANSPLANT
     Dosage: 8 MG, UNK
     Dates: start: 20090731, end: 20090829
  5. NEORAL [Suspect]
     Dosage: 175 MG, QD
     Dates: start: 20091015, end: 20100106
  6. NEORAL [Suspect]
     Indication: RENAL TRANSPLANT
     Dosage: UNK
     Route: 048
     Dates: start: 20090630
  7. NEORAL [Suspect]
     Dosage: UNK
  8. NO TREATMENT RECEIVED [Suspect]
     Indication: RENAL TRANSPLANT
     Dosage: UNK
     Route: 048
  9. MEDROL [Suspect]
     Dosage: UNK
     Route: 048
     Dates: start: 20090702, end: 20090916
  10. LESCOL [Concomitant]
     Indication: HYPERCHOLESTEROLAEMIA
  11. MYFORTIC [Suspect]
     Indication: RENAL TRANSPLANT
     Dosage: UNK
     Route: 048
     Dates: start: 20090630
  12. MYFORTIC [Suspect]
     Dosage: 720 MG, BID
     Route: 048
     Dates: start: 20090703, end: 20090825
  13. MYFORTIC [Suspect]
     Dosage: 540 MG, BID
     Route: 048
     Dates: start: 20090826, end: 20091223

REACTIONS (4)
  - CYTOMEGALOVIRUS INFECTION [None]
  - COUGH [None]
  - DIARRHOEA [None]
  - PYREXIA [None]
